FAERS Safety Report 17550559 (Version 3)
Quarter: 2020Q4

REPORT INFORMATION
  Report Type: Report from Study
  Country: GB (occurrence: GB)
  Receive Date: 20200317
  Receipt Date: 20201119
  Transmission Date: 20210113
  Serious: Yes (Hospitalization)
  Sender: FDA-Public Use
  Company Number: NVSC2020GB069762

PATIENT
  Age: 81 Year
  Sex: Male

DRUGS (3)
  1. LUTATHERA [Suspect]
     Active Substance: LUTETIUM OXODOTREOTIDE LU-177
     Indication: GASTROENTEROPANCREATIC NEUROENDOCRINE TUMOUR DISEASE
     Dosage: 209 MCI
     Route: 065
     Dates: start: 20191010
  2. LUTATHERA [Suspect]
     Active Substance: LUTETIUM OXODOTREOTIDE LU-177
     Dosage: 208 MCI
     Route: 065
     Dates: start: 20191219
  3. LUTATHERA [Suspect]
     Active Substance: LUTETIUM OXODOTREOTIDE LU-177
     Dosage: 202 MCI
     Route: 042
     Dates: start: 20200224

REACTIONS (12)
  - CD4 lymphocytes decreased [Recovering/Resolving]
  - Eosinophil count decreased [Recovering/Resolving]
  - Fatigue [Recovering/Resolving]
  - Monocyte count increased [Recovered/Resolved]
  - Mobility decreased [Not Recovered/Not Resolved]
  - Hypoalbuminaemia [Recovering/Resolving]
  - Malaise [Not Recovered/Not Resolved]
  - Lower respiratory tract infection [Not Recovered/Not Resolved]
  - Decreased appetite [Not Recovered/Not Resolved]
  - Platelet count decreased [Unknown]
  - Blood urea increased [Recovered/Resolved]
  - Neutrophil count increased [Recovered/Resolved]

NARRATIVE: CASE EVENT DATE: 20191104
